FAERS Safety Report 10189626 (Version 1)
Quarter: 2014Q2

REPORT INFORMATION
  Report Type: Spontaneous
  Country: US (occurrence: US)
  Receive Date: 20140522
  Receipt Date: 20140522
  Transmission Date: 20141212
  Serious: Yes (Other)
  Sender: FDA-Public Use
  Company Number: US-SA-2014SA013553

PATIENT
  Age: 65 Year
  Sex: Female
  Weight: 91.6 kg

DRUGS (2)
  1. LANTUS SOLOSTAR [Suspect]
     Indication: DIABETES MELLITUS
     Dosage: DAILY DOSE: 25 TOTAL
     Route: 058
  2. SOLOSTAR [Concomitant]

REACTIONS (2)
  - Cataract [Unknown]
  - Incorrect dose administered [Unknown]
